FAERS Safety Report 10222956 (Version 2)
Quarter: 2014Q3

REPORT INFORMATION
  Report Type: Spontaneous
  Country: IT (occurrence: IT)
  Receive Date: 20140607
  Receipt Date: 20140812
  Transmission Date: 20150326
  Serious: Yes (Hospitalization)
  Sender: FDA-Public Use
  Company Number: PHHY2014IT065644

PATIENT
  Age: 3 Year
  Sex: Male

DRUGS (1)
  1. AMOXICILLIN. [Suspect]
     Active Substance: AMOXICILLIN
     Dosage: 6 ML, UNK
     Route: 042
     Dates: start: 20130614, end: 20130614

REACTIONS (2)
  - Incorrect route of drug administration [Unknown]
  - Tremor [Unknown]

NARRATIVE: CASE EVENT DATE: 20130614
